FAERS Safety Report 5671560-8 (Version None)
Quarter: 2008Q1

REPORT INFORMATION
  Report Type: 
  Country: None (occurrence: None)
  Receive Date: 20080313
  Receipt Date: 20080229
  Transmission Date: 20080703
  Serious: Yes (Other)
  Sender: FDA-Public Use
  Company Number: 2008JP001100

PATIENT
  Age: 65 Year
  Sex: Male

DRUGS (2)
  1. PROGRAF [Suspect]
     Indication: CORD BLOOD TRANSPLANT THERAPY
  2. STEROID FORMULATION UNKNOWN [Concomitant]

REACTIONS (2)
  - CYTOMEGALOVIRUS ANTIGEN POSITIVE [None]
  - PULMONARY ALVEOLAR HAEMORRHAGE [None]
